FAERS Safety Report 13705137 (Version 1)
Quarter: 2017Q2

REPORT INFORMATION
  Report Type: Spontaneous
  Country: US (occurrence: US)
  Receive Date: 20170629
  Receipt Date: 20170629
  Transmission Date: 20170830
  Serious: Yes (Other)
  Sender: FDA-Public Use
  Company Number: None

PATIENT
  Age: 56 Year
  Sex: Female

DRUGS (1)
  1. IBRANCE [Suspect]
     Active Substance: PALBOCICLIB
     Indication: BREAST CANCER FEMALE
     Dosage: 125MG DAILY 3 WEEKS ON AND ONE WEEK OFF BY MOUTH
     Route: 048
     Dates: start: 20170620

REACTIONS (4)
  - Blister [None]
  - Erythema [None]
  - Pruritus [None]
  - Dry skin [None]

NARRATIVE: CASE EVENT DATE: 20170626
